FAERS Safety Report 21415759 (Version 8)
Quarter: 2024Q3

REPORT INFORMATION
  Report Type: Report from Study
  Country: CN (occurrence: CN)
  Receive Date: 20221006
  Receipt Date: 20240729
  Transmission Date: 20241017
  Serious: Yes (Death, Hospitalization, Other)
  Sender: ROCHE
  Company Number: CN-ROCHE-3189186

PATIENT
  Age: 69 Year
  Sex: Female
  Weight: 47.0 kg

DRUGS (1)
  1. AVASTIN [Suspect]
     Active Substance: BEVACIZUMAB
     Indication: Colon cancer
     Route: 041
     Dates: start: 20160203

REACTIONS (17)
  - Metastases to liver [Not Recovered/Not Resolved]
  - Metastases to spleen [Not Recovered/Not Resolved]
  - Metastases to abdominal cavity [Not Recovered/Not Resolved]
  - Cataract [Unknown]
  - Blindness [Unknown]
  - Nodule [Not Recovered/Not Resolved]
  - Lymphadenopathy [Not Recovered/Not Resolved]
  - Vomiting [Recovering/Resolving]
  - Diarrhoea [Recovering/Resolving]
  - Decreased appetite [Recovering/Resolving]
  - Asthenia [Recovering/Resolving]
  - Nasopharyngitis [Unknown]
  - Neoplasm progression [Not Recovered/Not Resolved]
  - Cough [Unknown]
  - Abdominal pain [Unknown]
  - Ascites [Not Recovered/Not Resolved]
  - Myocardial infarction [Fatal]

NARRATIVE: CASE EVENT DATE: 20211231
